FAERS Safety Report 9741828 (Version 2)
Quarter: 2013Q4

REPORT INFORMATION
  Report Type: Report from Study
  Country: CZ (occurrence: CZ)
  Receive Date: 20131210
  Receipt Date: 20131212
  Transmission Date: 20140711
  Serious: Yes (Death)
  Sender: FDA-Public Use
  Company Number: PHHY2013CZ142713

PATIENT
  Age: 40 Year
  Sex: Female

DRUGS (1)
  1. IMATINIB [Suspect]
     Dates: start: 20051101, end: 20051212

REACTIONS (3)
  - Peritonitis [Fatal]
  - Perforated ulcer [Fatal]
  - Sepsis [Fatal]
